FAERS Safety Report 23630677 (Version 1)
Quarter: 2024Q1

REPORT INFORMATION
  Report Type: Report from Study
  Country: DE (occurrence: DE)
  Receive Date: 20240314
  Receipt Date: 20240314
  Transmission Date: 20240410
  Serious: Yes (Hospitalization)
  Sender: FDA-Public Use
  Company Number: DE-ROCHE-2651798

PATIENT
  Age: 51 Year
  Sex: Male

DRUGS (11)
  1. METHOTREXATE [Suspect]
     Active Substance: METHOTREXATE
     Indication: Rheumatoid arthritis
     Dosage: 20MG
     Route: 050
  2. METHOTREXATE [Suspect]
     Active Substance: METHOTREXATE
     Indication: Rheumatoid arthritis
     Dosage: 30MG
     Route: 050
  3. METHOTREXATE [Suspect]
     Active Substance: METHOTREXATE
     Indication: Rheumatoid arthritis
     Dosage: 25MG
     Route: 050
  4. RITUXIMAB [Concomitant]
     Active Substance: RITUXIMAB
     Indication: Rheumatoid arthritis
     Dosage: 1000 MG
     Route: 050
     Dates: start: 201707
  5. KINERET [Concomitant]
     Active Substance: ANAKINRA
     Indication: Rheumatoid arthritis
     Route: 050
     Dates: start: 201907, end: 201911
  6. REMICADE [Concomitant]
     Active Substance: INFLIXIMAB
     Indication: Rheumatoid arthritis
     Dosage: 500MG
     Route: 050
     Dates: start: 201912, end: 202002
  7. CIMZIA [Concomitant]
     Active Substance: CERTOLIZUMAB PEGOL
     Indication: Rheumatoid arthritis
     Dosage: 200MG
     Route: 050
  8. CIMZIA [Concomitant]
     Active Substance: CERTOLIZUMAB PEGOL
     Indication: Rheumatoid arthritis
     Dosage: 400MG
     Route: 050
     Dates: start: 201603
  9. RINVOQ [Concomitant]
     Active Substance: UPADACITINIB
     Indication: Rheumatoid arthritis
     Route: 050
     Dates: start: 202003
  10. TOCILIZUMAB [Concomitant]
     Active Substance: TOCILIZUMAB
     Indication: Rheumatoid arthritis
     Dosage: 162MG
     Route: 050
     Dates: start: 201702, end: 201704
  11. OLUMIANT [Concomitant]
     Active Substance: BARICITINIB
     Indication: Rheumatoid arthritis
     Dosage: 4MG
     Route: 050
     Dates: start: 201704, end: 201707

REACTIONS (7)
  - Pyrexia [Not Recovered/Not Resolved]
  - Night sweats [Not Recovered/Not Resolved]
  - Rash [Not Recovered/Not Resolved]
  - Sarcoidosis [Recovered/Resolved]
  - Fungal skin infection [Unknown]
  - COVID-19 [Unknown]
  - Seminoma [Unknown]

NARRATIVE: CASE EVENT DATE: 20190601
